FAERS Safety Report 8564484 (Version 7)
Quarter: 2013Q3

REPORT INFORMATION
  Report Type: Report from Study
  Country: IT (occurrence: IT)
  Receive Date: 20120516
  Receipt Date: 20130702
  Transmission Date: 20140515
  Serious: Yes (Death, Other)
  Sender: FDA-Public Use
  Company Number: IT-CELGENEUS-083-C5013-12050520

PATIENT
  Age: 66 Year
  Sex: Male
  Weight: 69 kg

DRUGS (9)
  1. THALIDOMIDE [Suspect]
     Indication: PLASMA CELL MYELOMA
     Route: 048
     Dates: start: 20091015
  2. THALIDOMIDE [Suspect]
     Route: 048
     Dates: end: 20110322
  3. MELPHALAN [Suspect]
     Indication: PLASMA CELL MYELOMA
     Dosage: DAYS 1-42 OF EACH 42 DAY CYCLE
     Route: 048
     Dates: start: 20091015
  4. MELPHALAN [Suspect]
     Dosage: DAYS 1-42 OF EACH 42 DAY CYCLE
     Route: 048
     Dates: end: 20110322
  5. PREDNISONE [Suspect]
     Indication: PLASMA CELL MYELOMA
     Dosage: DAYS 1-42 OF EACH 42 DAY CYCLE
     Route: 048
     Dates: start: 20091015
  6. PREDNISONE [Suspect]
     Dosage: DAYS 1-42 OF EACH 42 DAY CYCLE
     Route: 048
     Dates: end: 20110322
  7. COVERSYL [Concomitant]
     Indication: HYPERTENSION
     Dosage: 5 MILLIGRAM
     Route: 048
     Dates: start: 2005
  8. CARDIOASPIRIN [Concomitant]
     Indication: THROMBOSIS PROPHYLAXIS
     Dosage: 100 MILLIGRAM
     Route: 048
     Dates: start: 20091015
  9. LANSOX [Concomitant]
     Indication: PROPHYLAXIS
     Dosage: 30 MILLIGRAM
     Route: 048
     Dates: start: 20091015

REACTIONS (1)
  - Myelodysplastic syndrome [Fatal]
